FAERS Safety Report 20990700 (Version 2)
Quarter: 2022Q3

REPORT INFORMATION
  Report Type: Spontaneous
  Country: ET (occurrence: ET)
  Receive Date: 20220622
  Receipt Date: 20220718
  Transmission Date: 20221027
  Serious: Yes (Life-Threatening)
  Sender: FDA-Public Use
  Company Number: ET-BAUSCH-BL-2022-015288

PATIENT
  Age: 39 Year
  Sex: Female

DRUGS (17)
  1. HYDROCORTISONE [Suspect]
     Active Substance: HYDROCORTISONE
     Indication: Septic shock
     Dosage: 50MG IV QID
     Route: 042
     Dates: start: 2021
  2. AMPHOTERICIN B [Suspect]
     Active Substance: AMPHOTERICIN B
     Indication: Mucormycosis
     Dosage: ONCE PER DAY
     Route: 042
     Dates: start: 2021
  3. TIMOLOL [Concomitant]
     Active Substance: TIMOLOL
     Indication: Angle closure glaucoma
     Dates: start: 2021
  4. TROPICAMIDE [Concomitant]
     Active Substance: TROPICAMIDE
     Indication: Angle closure glaucoma
     Dates: start: 2021
  5. ACETAZOLAMIDE [Concomitant]
     Active Substance: ACETAZOLAMIDE
     Indication: Angle closure glaucoma
     Route: 048
     Dates: start: 2021
  6. PREDNISOLONE [Concomitant]
     Active Substance: PREDNISOLONE
     Indication: Angle closure glaucoma
     Route: 048
     Dates: start: 2021
  7. PREDNISOLONE [Concomitant]
     Active Substance: PREDNISOLONE
     Route: 048
  8. AZITHROMYCIN [Concomitant]
     Active Substance: AZITHROMYCIN
     Indication: COVID-19
     Dates: start: 2021
  9. INSULIN NOS [Concomitant]
     Active Substance: INSULIN NOS
     Indication: Diabetes mellitus inadequate control
     Dosage: 16/8
     Route: 058
     Dates: start: 2021, end: 2021
  10. INSULIN NOS [Concomitant]
     Active Substance: INSULIN NOS
     Dosage: 28/14
     Route: 058
     Dates: start: 2021
  11. CEFTRIAXONE\SULBACTAM [Concomitant]
     Active Substance: CEFTRIAXONE\SULBACTAM
     Indication: COVID-19
     Route: 042
     Dates: start: 202107
  12. HEPARIN [Concomitant]
     Active Substance: HEPARIN SODIUM
     Indication: Product used for unknown indication
     Dosage: 17500 (UNIT UNSPECIFIED)
     Route: 058
     Dates: start: 202107
  13. VITAMIN C [Concomitant]
     Active Substance: ASCORBIC ACID
     Indication: Product used for unknown indication
     Route: 048
     Dates: start: 202107
  14. ZINC [Concomitant]
     Active Substance: ZINC
     Indication: Product used for unknown indication
     Route: 048
     Dates: start: 202107
  15. VANCOMYCIN [Concomitant]
     Active Substance: VANCOMYCIN
     Indication: Cellulitis orbital
     Dates: start: 2021
  16. MEROPENEM [Concomitant]
     Active Substance: MEROPENEM
     Indication: COVID-19
     Route: 042
     Dates: start: 2021, end: 2021
  17. MEROPENEM [Concomitant]
     Active Substance: MEROPENEM
     Route: 042
     Dates: start: 2021

REACTIONS (1)
  - Therapy non-responder [Unknown]

NARRATIVE: CASE EVENT DATE: 20210101
